FAERS Safety Report 4637605-9 (Version None)
Quarter: 2005Q2

REPORT INFORMATION
  Report Type: 
  Country: None (occurrence: None)
  Receive Date: 20050325
  Receipt Date: 20041122
  Transmission Date: 20051028
  Serious: No
  Sender: FDA-Public Use
  Company Number: USA041184432

PATIENT
  Age: 69 Year
  Sex: Female

DRUGS (7)
  1. FORTEO [Suspect]
     Indication: OSTEOPOROSIS
     Dates: start: 20041117
  2. THYROID MEDICINE [Concomitant]
  3. FOSAMAX [Concomitant]
  4. ULTRAM [Concomitant]
  5. KLONOPIN [Concomitant]
  6. ELAVIL [Concomitant]
  7. MULTI-VITAMIN [Concomitant]

REACTIONS (6)
  - ASTHENIA [None]
  - FATIGUE [None]
  - FEELING ABNORMAL [None]
  - HEADACHE [None]
  - LETHARGY [None]
  - SOMNOLENCE [None]
